FAERS Safety Report 13913702 (Version 1)
Quarter: 2017Q3

REPORT INFORMATION
  Report Type: Spontaneous
  Country: IS (occurrence: IS)
  Receive Date: 20170829
  Receipt Date: 20170829
  Transmission Date: 20171127
  Serious: Yes (Hospitalization, Other)
  Sender: FDA-Public Use
  Company Number: IS-MYLANLABS-2017M1052665

PATIENT

DRUGS (10)
  1. ESOPRAM [Concomitant]
     Active Substance: ESCITALOPRAM OXALATE
  2. SIMVASTATIN ACTAVIS [Concomitant]
     Active Substance: SIMVASTATIN
  3. METOPROLOL MYLAN [Concomitant]
     Active Substance: METOPROLOL
  4. FURADANTIN [Suspect]
     Active Substance: NITROFURANTOIN
     Indication: URINARY TRACT INFECTION
     Dosage: 3 TIMES DAILY FOR 7 DAYS, THEN ONCE DAILY
     Dates: start: 20170624, end: 20170705
  5. HJERTEMAGNYL [Concomitant]
     Active Substance: ASPIRIN\MAGNESIUM OXIDE
  6. AMLODIPIN BLUEFISH [Concomitant]
     Active Substance: AMLODIPINE BESYLATE
  7. IMDUR [Concomitant]
     Active Substance: ISOSORBIDE MONONITRATE
     Dosage: 60 MG + 30 MG
  8. VENTOLIN [Concomitant]
     Active Substance: ALBUTEROL SULFATE
     Dosage: PN
  9. SOBRIL [Concomitant]
     Active Substance: OXAZEPAM
  10. ACTIVELLE [Concomitant]
     Active Substance: ESTRADIOL\NORETHINDRONE ACETATE
     Dosage: 1 TABLETT DAILY

REACTIONS (8)
  - Hypoxia [Recovered/Resolved]
  - Nausea [Recovered/Resolved]
  - Urticaria [Recovered/Resolved]
  - Dyspnoea [Recovered/Resolved]
  - Headache [Recovered/Resolved]
  - Pulmonary oedema [Recovered/Resolved]
  - Oedema peripheral [Recovered/Resolved]
  - Erythema [Recovered/Resolved]

NARRATIVE: CASE EVENT DATE: 20170702
